FAERS Safety Report 18475707 (Version 4)
Quarter: 2021Q2

REPORT INFORMATION
  Report Type: Spontaneous
  Country: US (occurrence: US)
  Receive Date: 20201106
  Receipt Date: 20210609
  Transmission Date: 20210717
  Serious: Yes (Other)
  Sender: FDA-Public Use
  Company Number: US-PFIZER INC-2020431052

PATIENT
  Age: 45 Year
  Sex: Female

DRUGS (13)
  1. IBUPROFEN. [Concomitant]
     Active Substance: IBUPROFEN
  2. DICYCLOMINE HCL [Concomitant]
     Active Substance: DICYCLOMINE HYDROCHLORIDE
  3. MECLIZINE [Concomitant]
     Active Substance: MECLIZINE HYDROCHLORIDE
  4. ZOFRAN [Concomitant]
     Active Substance: ONDANSETRON HYDROCHLORIDE
  5. LUPRON DEPOT [Concomitant]
     Active Substance: LEUPROLIDE ACETATE
  6. BIOTIN [Concomitant]
     Active Substance: BIOTIN
  7. ANASTROZOLE. [Concomitant]
     Active Substance: ANASTROZOLE
  8. MULTIPLE VITAMINS [Concomitant]
     Active Substance: VITAMINS
  9. ELIQUIS [Concomitant]
     Active Substance: APIXABAN
  10. IBRANCE [Suspect]
     Active Substance: PALBOCICLIB
     Indication: BREAST CANCER FEMALE
     Dosage: 100 MG, CYCLIC (ONCE DAILY ON DAYS 1 TO 21, FOLLOWED BY 7 DAYS OF REST, REPEATED EVERY 28DAYS)
     Route: 048
     Dates: start: 202010
  11. LORATADINE. [Concomitant]
     Active Substance: LORATADINE
     Indication: HYPERSENSITIVITY
  12. OMEPRAZOLE. [Concomitant]
     Active Substance: OMEPRAZOLE
  13. FAMOTIDINE. [Concomitant]
     Active Substance: FAMOTIDINE

REACTIONS (9)
  - White blood cell count decreased [Recovering/Resolving]
  - Oral pain [Unknown]
  - Hypoaesthesia oral [Unknown]
  - Dry mouth [Unknown]
  - Pulmonary thrombosis [Unknown]
  - Headache [Unknown]
  - Anaemia [Unknown]
  - Product dose omission issue [Unknown]
  - Glossodynia [Unknown]

NARRATIVE: CASE EVENT DATE: 2020
